FAERS Safety Report 25684854 (Version 1)
Quarter: 2025Q3

REPORT INFORMATION
  Report Type: Report from Study
  Country: US (occurrence: US)
  Receive Date: 20250815
  Receipt Date: 20250815
  Transmission Date: 20251020
  Serious: Yes (Other)
  Sender: AUROBINDO
  Company Number: US-AUROBINDO-AUR-APL-2025-038717

PATIENT

DRUGS (1)
  1. QUETIAPINE [Suspect]
     Active Substance: QUETIAPINE
     Indication: Product used for unknown indication
     Route: 048

REACTIONS (5)
  - Intentional overdose [Recovered/Resolved]
  - Delirium [Recovered/Resolved]
  - Dry mouth [Recovered/Resolved]
  - Toxicity to various agents [Recovered/Resolved]
  - Abnormal behaviour [Recovered/Resolved]
